FAERS Safety Report 8217367-9 (Version None)
Quarter: 2012Q1

REPORT INFORMATION
  Report Type: 
  Country: None (occurrence: None)
  Receive Date: 20120319
  Receipt Date: 20120312
  Transmission Date: 20120608
  Serious: Yes (Hospitalization, Other)
  Sender: FDA-Public Use
  Company Number: US-BAYER-2011-096673

PATIENT
  Age: 43 Year
  Sex: Female
  Weight: 98 kg

DRUGS (8)
  1. BUTALBITAL [Concomitant]
     Indication: MIGRAINE
     Dosage: UNK UNK, PRN
  2. DYNACIRC CR [Concomitant]
     Indication: HYPERTENSION
     Dosage: UNK UNK, QD
     Dates: start: 20040101, end: 20051001
  3. ZOLOFT [Concomitant]
     Indication: DEPRESSION
     Dosage: UNK UNK, QD
     Dates: start: 20040301
  4. LEVOTHYROXINE SODIUM [Concomitant]
     Indication: HYPOTHYROIDISM
     Dosage: UNK UNK, QD
     Dates: start: 19960101
  5. NIASPAN [Concomitant]
     Indication: BLOOD CHOLESTEROL INCREASED
     Dosage: UNK UNK, QD
  6. PRILOSEC [Concomitant]
     Dosage: UNK UNK, PRN
  7. YASMIN [Suspect]
     Indication: ORAL CONTRACEPTION
     Dosage: UNK
     Route: 048
     Dates: start: 20020501, end: 20050109
  8. IBUPROFEN [Concomitant]
     Indication: MIGRAINE
     Dosage: UNK UNK, PRN

REACTIONS (4)
  - INJURY [None]
  - MIGRAINE [None]
  - CEREBROVASCULAR ACCIDENT [None]
  - DEEP VEIN THROMBOSIS [None]
